FAERS Safety Report 15876678 (Version 1)
Quarter: 2019Q1

REPORT INFORMATION
  Report Type: Spontaneous
  Country: CA (occurrence: CA)
  Receive Date: 20190127
  Receipt Date: 20190127
  Transmission Date: 20190417
  Serious: Yes (Other)
  Sender: FDA-Public Use
  Company Number: CA-ICU MEDICAL, INC.-ICU2019CA00013

PATIENT
  Sex: Male

DRUGS (2)
  1. BICART                             /00049401/ [Suspect]
     Active Substance: SODIUM BICARBONATE
     Indication: HAEMODIALYSIS
  2. 0.9% SODIUM CHLORIDE INJECTION USP (100 ML) [Suspect]
     Active Substance: SODIUM CHLORIDE
     Indication: HAEMODIALYSIS
     Route: 042

REACTIONS (1)
  - Haemorrhage [Unknown]
